FAERS Safety Report 23006377 (Version 4)
Quarter: 2024Q1

REPORT INFORMATION
  Report Type: Other
  Country: IT (occurrence: None)
  Receive Date: 20230929
  Receipt Date: 20240312
  Transmission Date: 20240410
  Serious: Yes (Hospitalization, Other)
  Sender: FDA-Public Use
  Company Number: IT-ROCHE-3428479

PATIENT
  Age: 71 Year
  Sex: Female

DRUGS (9)
  1. OBINUTUZUMAB [Suspect]
     Active Substance: OBINUTUZUMAB
     Indication: Richter^s syndrome
     Dosage: CYCLE 1 DAY 1
     Route: 042
     Dates: start: 20230914
  2. GLOFITAMAB [Suspect]
     Active Substance: GLOFITAMAB
     Indication: Richter^s syndrome
     Dosage: DOSE: 2.5 MG/EV?CYCLE 1 DAY 8
     Route: 065
     Dates: start: 20230926
  3. RAMIPRIL [Concomitant]
     Active Substance: RAMIPRIL
  4. LANSOPRAZOLE [Concomitant]
     Active Substance: LANSOPRAZOLE
  5. FILGRASTIM [Concomitant]
     Active Substance: FILGRASTIM
  6. EPOETINA ALFA [Concomitant]
  7. FLUCONAZOLE [Concomitant]
     Active Substance: FLUCONAZOLE
  8. MOXIFLOXACIN HYDROCHLORIDE [Concomitant]
     Active Substance: MOXIFLOXACIN HYDROCHLORIDE\MOXIFLOXACIN HYDROCHLORIDE MONOHYDRATE
  9. NOREPINEPHRINE [Concomitant]
     Active Substance: NOREPINEPHRINE\NOREPINEPHRINE BITARTRATE

REACTIONS (6)
  - Pyrexia [Recovered/Resolved]
  - Escherichia urinary tract infection [Unknown]
  - Antimicrobial susceptibility test resistant [Unknown]
  - Blood test abnormal [Unknown]
  - Hypotension [Unknown]
  - Liver function test abnormal [Unknown]

NARRATIVE: CASE EVENT DATE: 20230918
